FAERS Safety Report 5323521-6 (Version None)
Quarter: 2007Q2

REPORT INFORMATION
  Report Type: 
  Country: None (occurrence: None)
  Receive Date: 20070510
  Receipt Date: 20070510
  Transmission Date: 20071010
  Serious: Yes (Hospitalization)
  Sender: FDA-Public Use
  Company Number: None

PATIENT
  Sex: Female

DRUGS (9)
  1. BEVACIZUMAB (GENENTECH) [Suspect]
     Indication: GLIOBLASTOMA MULTIFORME
     Dosage: 10 MG/KG
     Dates: start: 20070302
  2. ERLOTINIB (GENENTECH) [Suspect]
     Indication: GLIOBLASTOMA MULTIFORME
     Dosage: 200 MG/DAY
     Dates: start: 20070301
  3. KEPPRA [Concomitant]
  4. NEXIUM [Concomitant]
  5. SENOKOT [Concomitant]
  6. ELAVIL [Concomitant]
  7. RITALIN [Concomitant]
  8. VALIUM [Concomitant]
  9. DECADRON [Concomitant]

REACTIONS (6)
  - CONVULSION [None]
  - HEADACHE [None]
  - HYPERGLYCAEMIA [None]
  - ILL-DEFINED DISORDER [None]
  - LEUKOPENIA [None]
  - PARAESTHESIA [None]
